FAERS Safety Report 12631224 (Version 2)
Quarter: 2016Q3

REPORT INFORMATION
  Report Type: Spontaneous
  Country: US (occurrence: US)
  Receive Date: 20160808
  Receipt Date: 20160808
  Transmission Date: 20161109
  Serious: No
  Sender: FDA-Public Use
  Company Number: US-BEH-2015052893

PATIENT
  Sex: Female
  Weight: 99.8 kg

DRUGS (29)
  1. DIPHENHYDRAMINE. [Concomitant]
     Active Substance: DIPHENHYDRAMINE
  2. TRIAMCINOLONE [Concomitant]
     Active Substance: TRIAMCINOLONE
  3. LOSARTAN. [Concomitant]
     Active Substance: LOSARTAN
  4. NEXIUM [Concomitant]
     Active Substance: ESOMEPRAZOLE MAGNESIUM
  5. CETIRIZINE [Concomitant]
     Active Substance: CETIRIZINE HYDROCHLORIDE
  6. ULTRA MEGA ORAL TABLET [Concomitant]
  7. HIZENTRA [Suspect]
     Active Substance: HUMAN IMMUNOGLOBULIN G
     Indication: IMMUNODEFICIENCY COMMON VARIABLE
     Route: 058
  8. HIZENTRA [Suspect]
     Active Substance: HUMAN IMMUNOGLOBULIN G
     Route: 058
  9. POTASSIUM CHLORIDE. [Concomitant]
     Active Substance: POTASSIUM CHLORIDE
  10. PRAVACHOL [Concomitant]
     Active Substance: PRAVASTATIN SODIUM
  11. LASIX [Concomitant]
     Active Substance: FUROSEMIDE
  12. EPIPEN [Concomitant]
     Active Substance: EPINEPHRINE
  13. ERYTHROMYCIN. [Concomitant]
     Active Substance: ERYTHROMYCIN
  14. SINGULAIR [Concomitant]
     Active Substance: MONTELUKAST SODIUM
  15. ASTELIN [Concomitant]
     Active Substance: AZELASTINE HYDROCHLORIDE
  16. DULERA [Concomitant]
     Active Substance: FORMOTEROL FUMARATE DIHYDRATE\MOMETASONE FUROATE
  17. FLONASE [Concomitant]
     Active Substance: FLUTICASONE PROPIONATE
  18. LIDOCAINE. [Concomitant]
     Active Substance: LIDOCAINE
  19. DIFLUCAN [Concomitant]
     Active Substance: FLUCONAZOLE
  20. MUPIROCIN. [Concomitant]
     Active Substance: MUPIROCIN
  21. PROZAC [Concomitant]
     Active Substance: FLUOXETINE HYDROCHLORIDE
  22. HIZENTRA [Suspect]
     Active Substance: HUMAN IMMUNOGLOBULIN G
     Route: 058
  23. PROVENTIL [Concomitant]
     Active Substance: ALBUTEROL
  24. FISH OIL [Concomitant]
     Active Substance: FISH OIL
  25. OSCAL [Concomitant]
     Active Substance: CALCIUM CARBONATE
  26. HYDROCHLOROTHIAZIDE. [Concomitant]
     Active Substance: HYDROCHLOROTHIAZIDE
  27. GABAPENTIN. [Concomitant]
     Active Substance: GABAPENTIN
  28. AMOXICILLIN CALV [Concomitant]
  29. ACETAMINOPHEN. [Concomitant]
     Active Substance: ACETAMINOPHEN

REACTIONS (1)
  - Infusion site extravasation [Unknown]
